FAERS Safety Report 4947830-5 (Version None)
Quarter: 2006Q1

REPORT INFORMATION
  Report Type: 
  Country: None (occurrence: None)
  Receive Date: 20060313
  Receipt Date: 20060224
  Transmission Date: 20060701
  Serious: Yes (Hospitalization)
  Sender: FDA-Public Use
  Company Number: 221960

PATIENT
  Age: 74 Year
  Sex: Male
  Weight: 73.4 kg

DRUGS (8)
  1. AVASTIN [Suspect]
     Indication: COLORECTAL CANCER METASTATIC
     Dosage: 395 MG, Q2W
     Dates: start: 20041013, end: 20051208
  2. IRINOTECAN HCL [Suspect]
     Indication: COLORECTAL CANCER METASTATIC
     Dates: end: 20051215
  3. FLUOROURACIL [Suspect]
     Indication: COLORECTAL CANCER METASTATIC
     Dates: end: 20051215
  4. COZAAR [Concomitant]
  5. ATENOLOL [Concomitant]
  6. E (LEVOTHYROXINE SODIUM) [Concomitant]
  7. TRAMADOL HCL [Concomitant]
  8. DALTEPARIN (DALTEPARIN SODIUM) [Concomitant]

REACTIONS (4)
  - ABDOMINAL PAIN [None]
  - NAUSEA [None]
  - PNEUMONIA [None]
  - PULMONARY EMBOLISM [None]
